FAERS Safety Report 6508892-7 (Version None)
Quarter: 2009Q4

REPORT INFORMATION
  Report Type: 
  Country: None (occurrence: None)
  Receive Date: 20091221
  Receipt Date: 20090825
  Transmission Date: 20100525
  Serious: No
  Sender: FDA-Public Use
  Company Number: US-ASTRAZENECA-2009SE09946

PATIENT
  Age: 74 Year
  Sex: Male
  Weight: 84.4 kg

DRUGS (1)
  1. CRESTOR [Suspect]
     Indication: HYPERCHOLESTEROLAEMIA
     Route: 048
     Dates: start: 20080101

REACTIONS (2)
  - INSOMNIA [None]
  - KNEE ARTHROPLASTY [None]
